FAERS Safety Report 17414495 (Version 1)
Quarter: 2020Q1

REPORT INFORMATION
  Report Type: Spontaneous
  Country: US (occurrence: US)
  Receive Date: 20200213
  Receipt Date: 20200213
  Transmission Date: 20200409
  Serious: No
  Sender: FDA-Public Use
  Company Number: US-PFIZER INC-2020062646

PATIENT

DRUGS (2)
  1. XANAX [Suspect]
     Active Substance: ALPRAZOLAM
     Indication: NERVOUSNESS
  2. XANAX [Suspect]
     Active Substance: ALPRAZOLAM
     Indication: HELICOBACTER INFECTION
     Dosage: UNK

REACTIONS (2)
  - Erythema [Unknown]
  - Anxiety [Unknown]
